FAERS Safety Report 10913798 (Version 2)
Quarter: 2015Q1

REPORT INFORMATION
  Report Type: Spontaneous
  Country: US (occurrence: US)
  Receive Date: 20150313
  Receipt Date: 20150319
  Transmission Date: 20150721
  Serious: No
  Sender: FDA-Public Use
  Company Number: US-PFIZER INC-2015087342

PATIENT
  Age: 56 Year
  Sex: Female

DRUGS (2)
  1. LYRICA [Suspect]
     Active Substance: PREGABALIN
     Indication: PAIN
  2. LYRICA [Suspect]
     Active Substance: PREGABALIN
     Indication: SEIZURE
     Dosage: 200 MG, 3X/DAY
     Route: 048

REACTIONS (6)
  - Drug ineffective [Unknown]
  - Scar [Unknown]
  - Blister infected [Not Recovered/Not Resolved]
  - Hypersensitivity [Unknown]
  - Pain [Unknown]
  - Swelling face [Unknown]
